FAERS Safety Report 10269024 (Version 1)
Quarter: 2014Q2

REPORT INFORMATION
  Report Type: Spontaneous
  Country: CL (occurrence: CL)
  Receive Date: 20140630
  Receipt Date: 20140630
  Transmission Date: 20141212
  Serious: Yes (Other)
  Sender: FDA-Public Use
  Company Number: CL-PFIZER INC-2014175826

PATIENT
  Age: 70 Year
  Sex: Female

DRUGS (2)
  1. XALATAN [Suspect]
     Indication: GLAUCOMA
     Dosage: 1 DROP IN THE MORNING AND 1 DROP IN THE NIGHT ON EACH EYE
     Route: 047
     Dates: start: 2004
  2. EUTIROX [Concomitant]

REACTIONS (3)
  - Eyelid disorder [Unknown]
  - Mood altered [Unknown]
  - Off label use [Unknown]
